FAERS Safety Report 15742045 (Version 1)
Quarter: 2018Q4

REPORT INFORMATION
  Report Type: Spontaneous
  Country: US (occurrence: US)
  Receive Date: 20181219
  Receipt Date: 20181219
  Transmission Date: 20190205
  Serious: Yes (Death, Other)
  Sender: FDA-Public Use
  Company Number: US-PFIZER INC-2018037172

PATIENT
  Age: 86 Year
  Sex: Male
  Weight: 83.9 kg

DRUGS (2)
  1. LYRICA [Suspect]
     Active Substance: PREGABALIN
     Indication: CONGENITAL NEUROPATHY
     Dosage: 50 MG, 2X/DAY
     Route: 048
     Dates: end: 201811
  2. LYRICA [Suspect]
     Active Substance: PREGABALIN
     Indication: NEUROPATHY PERIPHERAL
     Dosage: 50 MG, 4X/DAY
     Route: 048

REACTIONS (9)
  - Pneumonia [Fatal]
  - Off label use [Unknown]
  - Sepsis [Unknown]
  - Lung neoplasm malignant [Fatal]
  - Malaise [Unknown]
  - Cerebrovascular accident [Unknown]
  - Escherichia infection [Unknown]
  - Myocardial infarction [Unknown]
  - Cerebral haemorrhage [Unknown]

NARRATIVE: CASE EVENT DATE: 20171119
